FAERS Safety Report 22351486 (Version 1)
Quarter: 2023Q2

REPORT INFORMATION
  Report Type: Report from Study
  Country: CA (occurrence: CA)
  Receive Date: 20230522
  Receipt Date: 20230522
  Transmission Date: 20230722
  Serious: Yes (Other)
  Sender: FDA-Public Use
  Company Number: CA-AMGEN-CANNI2023085068

PATIENT
  Sex: Female

DRUGS (11)
  1. SOTORASIB [Suspect]
     Active Substance: SOTORASIB
     Indication: Non-small cell lung cancer
     Dosage: 240
     Route: 065
     Dates: start: 20211028
  2. SOTORASIB [Suspect]
     Active Substance: SOTORASIB
     Dosage: 240
     Route: 065
     Dates: start: 20211117
  3. SOTORASIB [Suspect]
     Active Substance: SOTORASIB
     Dosage: 240
     Route: 065
     Dates: start: 20211210
  4. SOTORASIB [Suspect]
     Active Substance: SOTORASIB
     Dosage: 240
     Route: 065
     Dates: start: 20220111
  5. SOTORASIB [Suspect]
     Active Substance: SOTORASIB
     Dosage: 240
     Route: 065
     Dates: start: 20220208
  6. SOTORASIB [Suspect]
     Active Substance: SOTORASIB
     Dosage: 240
     Route: 065
     Dates: start: 20220308
  7. SOTORASIB [Suspect]
     Active Substance: SOTORASIB
     Dosage: 240
     Route: 065
     Dates: start: 20220405
  8. SOTORASIB [Suspect]
     Active Substance: SOTORASIB
     Dosage: 240
     Route: 065
     Dates: start: 20220503
  9. SOTORASIB [Suspect]
     Active Substance: SOTORASIB
     Dosage: 240
     Route: 065
     Dates: start: 20220531
  10. SOTORASIB [Suspect]
     Active Substance: SOTORASIB
     Dosage: 240
     Route: 065
     Dates: start: 20220628
  11. SOTORASIB [Suspect]
     Active Substance: SOTORASIB
     Dosage: 240
     Route: 065
     Dates: start: 20220726

REACTIONS (1)
  - Non-small cell lung cancer [Unknown]
